FAERS Safety Report 6551164-5 (Version None)
Quarter: 2010Q1

REPORT INFORMATION
  Report Type: 
  Country: None (occurrence: None)
  Receive Date: 20100121
  Receipt Date: 20100112
  Transmission Date: 20100710
  Serious: Yes (Death)
  Sender: FDA-Public Use
  Company Number: SPV1-2009-01826

PATIENT
  Age: 27 Year
  Sex: Male
  Weight: 66.1 kg

DRUGS (1)
  1. ELAPRASE [Suspect]
     Indication: MUCOPOLYSACCHARIDOSIS II
     Dosage: IV DRIP
     Route: 041

REACTIONS (1)
  - CEREBRAL HAEMORRHAGE [None]
